FAERS Safety Report 17488189 (Version 2)
Quarter: 2020Q1

REPORT INFORMATION
  Report Type: Spontaneous
  Country: US (occurrence: US)
  Receive Date: 20200303
  Receipt Date: 20200319
  Transmission Date: 20200409
  Serious: No
  Sender: FDA-Public Use
  Company Number: US-PFIZER INC-2020093581

PATIENT
  Sex: Male

DRUGS (4)
  1. LYRICA [Suspect]
     Active Substance: PREGABALIN
     Dosage: 800 MG, DAILY (LYRICA 100 MG CAPSULE QTY 240 DAY SUPPLY 30)
  2. LYRICA [Suspect]
     Active Substance: PREGABALIN
     Dosage: 400 MG, DAILY
  3. PREGABALIN. [Suspect]
     Active Substance: PREGABALIN
     Indication: PAIN
     Dosage: 800 MG, DAILY
  4. PREGABALIN. [Suspect]
     Active Substance: PREGABALIN
     Dosage: 400 MG, DAILY

REACTIONS (2)
  - Therapeutic product effect incomplete [Unknown]
  - Prescribed overdose [Unknown]
